FAERS Safety Report 19133491 (Version 1)
Quarter: 2021Q2

REPORT INFORMATION
  Report Type: Spontaneous
  Country: US (occurrence: US)
  Receive Date: 20210413
  Receipt Date: 20210413
  Transmission Date: 20210717
  Serious: Yes (Hospitalization)
  Sender: FDA-Public Use
  Company Number: None

PATIENT
  Sex: Male

DRUGS (2)
  1. ENALAPRILAT. [Concomitant]
     Active Substance: ENALAPRILAT
  2. SILDENAFIL 10MG/ML SUSP [Suspect]
     Active Substance: SILDENAFIL
     Indication: PULMONARY HYPERTENSION
     Dosage: OTHER ROUTE:VIA G?TUBE?
     Dates: start: 20190614

REACTIONS (1)
  - Cardiac operation [None]
